FAERS Safety Report 19157101 (Version 1)
Quarter: 2021Q2

REPORT INFORMATION
  Report Type: Spontaneous
  Country: CA (occurrence: CA)
  Receive Date: 20210420
  Receipt Date: 20210420
  Transmission Date: 20210717
  Serious: Yes (Other)
  Sender: FDA-Public Use
  Company Number: NVSC2021CA085412

PATIENT

DRUGS (13)
  1. HYDROMORPHONE [Suspect]
     Active Substance: HYDROMORPHONE
     Indication: PAIN
     Dosage: UNK UNK, UNKNOWN
     Route: 065
  2. TEGRETOL [Suspect]
     Active Substance: CARBAMAZEPINE
     Indication: PAIN
     Dosage: UNK UNK, UNKNOWN
     Route: 065
  3. AMITRIPTYLINE [Suspect]
     Active Substance: AMITRIPTYLINE
     Indication: PAIN
     Dosage: UNK UNK, UNKNOWN
     Route: 065
  4. TORADOL [Suspect]
     Active Substance: KETOROLAC TROMETHAMINE
     Indication: PAIN
     Dosage: UNK UNK, UNKNOWN
     Route: 065
  5. CODEINE [Suspect]
     Active Substance: CODEINE
     Indication: PAIN
     Dosage: UNK UNK, UNKNOWN
     Route: 065
  6. CELEBREX [Suspect]
     Active Substance: CELECOXIB
     Indication: PAIN
     Dosage: UNK UNK, UNKNOWN
     Route: 065
  7. FENTANYL. [Suspect]
     Active Substance: FENTANYL
     Indication: PAIN
     Dosage: UNK UNK, UNKNOWN
     Route: 065
  8. XEOMIN [Suspect]
     Active Substance: INCOBOTULINUMTOXINA
     Indication: PAIN
     Dosage: UNK UNK, UNKNOWN (TOTAL 1 DAY)
     Route: 065
  9. CAFFEINE. [Suspect]
     Active Substance: CAFFEINE
     Indication: PAIN
     Dosage: UNK UNK, UNKNOWN
     Route: 065
  10. FENTANYL CITRATE. [Suspect]
     Active Substance: FENTANYL CITRATE
     Indication: PAIN
     Dosage: UNK UNK, UNKNOWN
     Route: 065
  11. BOTULINUM TOXIN TYPE A [Suspect]
     Active Substance: BOTULINUM TOXIN TYPE A
     Indication: PAIN
     Dosage: UNK UNK, UNKNOWN (TOTAL 1 DAY )
     Route: 065
  12. OXYCONTIN [Suspect]
     Active Substance: OXYCODONE HYDROCHLORIDE
     Indication: PAIN
     Dosage: UNK UNK, UNKNOWN
     Route: 065
  13. CESAMET [Suspect]
     Active Substance: NABILONE
     Indication: PAIN
     Dosage: UNK UNK, UNKNOWN
     Route: 065

REACTIONS (2)
  - Off label use [Unknown]
  - Drug dependence [Unknown]
